FAERS Safety Report 7211602-1 (Version None)
Quarter: 2011Q1

REPORT INFORMATION
  Report Type: 
  Country: None (occurrence: None)
  Receive Date: 20110105
  Receipt Date: 20101227
  Transmission Date: 20110831
  Serious: Yes (Hospitalization)
  Sender: FDA-Public Use
  Company Number: US-ABBOTT-10P-163-0684688-00

PATIENT
  Sex: Male
  Weight: 90.8 kg

DRUGS (2)
  1. NIASPAN [Suspect]
     Indication: HIGH DENSITY LIPOPROTEIN DECREASED
     Dates: start: 20090625, end: 20100610
  2. TRILIPIX [Suspect]
     Indication: HYPERTRIGLYCERIDAEMIA
     Dates: end: 20100610

REACTIONS (2)
  - HEPATIC ENZYME INCREASED [None]
  - CHEST PAIN [None]
